FAERS Safety Report 10570935 (Version 1)
Quarter: 2014Q4

REPORT INFORMATION
  Report Type: Spontaneous
  Country: ES (occurrence: GB)
  Receive Date: 20141107
  Receipt Date: 20141107
  Transmission Date: 20150529
  Serious: Yes (Disabling)
  Sender: FDA-Public Use
  Company Number: GB-FRI-1000072080

PATIENT
  Age: 73 Year
  Sex: Female
  Weight: 61 kg

DRUGS (9)
  1. SERTRALINE [Concomitant]
     Active Substance: SERTRALINE HYDROCHLORIDE
     Dates: start: 20140714
  2. REGURIN [Concomitant]
     Dates: start: 20140624
  3. TIOTROPIUM [Concomitant]
     Active Substance: TIOTROPIUM
     Dates: start: 20140618, end: 20140910
  4. SERETIDE [Concomitant]
     Active Substance: FLUTICASONE FUROATE\SALMETEROL XINAFOATE
     Dates: start: 20140714
  5. LAXIDO [Concomitant]
     Active Substance: POLYETHYLENE GLYCOL 3350\POTASSIUM CHLORIDE\SODIUM BICARBONATE\SODIUM CHLORIDE
     Dates: start: 20140624, end: 20140724
  6. SALBUTAMOL [Concomitant]
     Active Substance: ALBUTEROL
     Dates: start: 20140811
  7. SIMVASTATIN. [Concomitant]
     Active Substance: SIMVASTATIN
     Dates: start: 20140714
  8. ACLIDINIUM [Suspect]
     Active Substance: ACLIDINIUM BROMIDE
     Dates: start: 20140813
  9. CARBOCISTEINE [Concomitant]
     Active Substance: CARBOCYSTEINE
     Dates: start: 20140714

REACTIONS (1)
  - Vision blurred [Unknown]

NARRATIVE: CASE EVENT DATE: 20141017
